FAERS Safety Report 11315604 (Version 2)
Quarter: 2015Q3

REPORT INFORMATION
  Report Type: Report from Study
  Country: CA (occurrence: CA)
  Receive Date: 20150728
  Receipt Date: 20150904
  Transmission Date: 20151125
  Serious: Yes (Hospitalization, Other)
  Sender: FDA-Public Use
  Company Number: CA-ROCHE-1494460

PATIENT
  Sex: Female

DRUGS (5)
  1. ACTEMRA [Suspect]
     Active Substance: TOCILIZUMAB
     Indication: JUVENILE IDIOPATHIC ARTHRITIS
     Route: 058
     Dates: start: 20141020
  2. CORTISONE [Concomitant]
     Active Substance: CORTISONE\HYDROCORTISONE
  3. ACTEMRA [Suspect]
     Active Substance: TOCILIZUMAB
     Indication: JUVENILE IDIOPATHIC ARTHRITIS
     Route: 042
     Dates: start: 20150521, end: 201505
  4. NAPROXEN. [Concomitant]
     Active Substance: NAPROXEN
  5. ARAVA [Concomitant]
     Active Substance: LEFLUNOMIDE

REACTIONS (4)
  - Renal impairment [Not Recovered/Not Resolved]
  - Bacteraemia [Not Recovered/Not Resolved]
  - Injection site pain [Unknown]
  - Pyelonephritis [Not Recovered/Not Resolved]
